FAERS Safety Report 23747773 (Version 1)
Quarter: 2024Q2

REPORT INFORMATION
  Report Type: Spontaneous
  Country: US (occurrence: None)
  Receive Date: 20240416
  Receipt Date: 20240416
  Transmission Date: 20240716
  Serious: No
  Sender: FDA-Public Use
  Company Number: None

PATIENT
  Sex: Female

DRUGS (3)
  1. DEFERASIROX [Suspect]
     Active Substance: DEFERASIROX
     Indication: Haemochromatosis
     Dosage: FREQUENCY : DAILY;?
     Route: 048
     Dates: start: 202311
  2. DEFERASIROX [Suspect]
     Active Substance: DEFERASIROX
     Indication: Red blood cell transfusion
  3. OXBRYTA [Concomitant]

REACTIONS (2)
  - Sickle cell anaemia with crisis [None]
  - Surgery [None]
